FAERS Safety Report 23783540 (Version 1)
Quarter: 2024Q2

REPORT INFORMATION
  Report Type: Spontaneous
  Country: US (occurrence: US)
  Receive Date: 20240425
  Receipt Date: 20240425
  Transmission Date: 20240717
  Serious: No
  Sender: FDA-Public Use
  Company Number: US-PFIZER INC-202400091824

PATIENT
  Age: 71 Year
  Sex: Female
  Weight: 90.703 kg

DRUGS (1)
  1. NURTEC ODT [Suspect]
     Active Substance: RIMEGEPANT SULFATE
     Indication: Migraine
     Dosage: 75 MG
     Dates: start: 20240413

REACTIONS (2)
  - Therapeutic product effect incomplete [Unknown]
  - Memory impairment [Unknown]
